FAERS Safety Report 5669673-X (Version None)
Quarter: 2008Q1

REPORT INFORMATION
  Report Type: 
  Country: None (occurrence: None)
  Receive Date: 20080317
  Receipt Date: 20080310
  Transmission Date: 20080703
  Serious: Yes (Hospitalization, Other)
  Sender: FDA-Public Use
  Company Number: US-ALLERGAN-0802909US

PATIENT
  Sex: Male

DRUGS (2)
  1. SANCTURA XR [Suspect]
     Indication: PROSTATOMEGALY
     Dosage: 60 MG, QHS
     Route: 048
     Dates: start: 20080119
  2. SANCTURA XR [Suspect]
     Indication: MICTURITION URGENCY

REACTIONS (4)
  - ABDOMINAL PAIN UPPER [None]
  - ASTHENIA [None]
  - COUGH [None]
  - SMALL INTESTINAL OBSTRUCTION [None]
